FAERS Safety Report 4679989-1 (Version None)
Quarter: 2005Q2

REPORT INFORMATION
  Report Type: 
  Country: None (occurrence: None)
  Receive Date: 20050531
  Receipt Date: 20050519
  Transmission Date: 20051028
  Serious: Yes (Other)
  Sender: FDA-Public Use
  Company Number: 2005057375

PATIENT
  Age: 28 Year
  Sex: Male

DRUGS (2)
  1. BEXTRA [Suspect]
     Indication: PHARYNGITIS
     Dosage: 40 MG (40 MG, 1 IN 1 D), ORAL
     Route: 048
     Dates: start: 20050406, end: 20050410
  2. ANTIBIOTICS (ANTIBIOTICS) [Concomitant]

REACTIONS (4)
  - GINGIVAL INFECTION [None]
  - PHARYNGITIS [None]
  - SENSITIVITY OF TEETH [None]
  - TONGUE ERUPTION [None]
